FAERS Safety Report 9915243 (Version 1)
Quarter: 2014Q1

REPORT INFORMATION
  Report Type: Spontaneous
  Country: US (occurrence: US)
  Receive Date: 20140221
  Receipt Date: 20140221
  Transmission Date: 20141002
  Serious: Yes (Hospitalization, Other)
  Sender: FDA-Public Use
  Company Number: US-AMGEN-USASP2014011703

PATIENT
  Age: 56 Year
  Sex: Female

DRUGS (1)
  1. ENBREL [Suspect]
     Indication: RHEUMATOID ARTHRITIS
     Dosage: 50 ML, QWK
     Route: 065
     Dates: start: 20021115

REACTIONS (5)
  - Intervertebral disc disorder [Recovered/Resolved]
  - Staphylococcal infection [Recovered/Resolved]
  - Pain [Not Recovered/Not Resolved]
  - Hypoaesthesia [Recovered/Resolved]
  - Feeling abnormal [Not Recovered/Not Resolved]
